FAERS Safety Report 8446615-5 (Version None)
Quarter: 2012Q2

REPORT INFORMATION
  Report Type: 
  Country: None (occurrence: None)
  Receive Date: 20120619
  Receipt Date: 20120611
  Transmission Date: 20120825
  Serious: Yes (Other)
  Sender: FDA-Public Use
  Company Number: BR-AMGEN-BRASP2012036946

PATIENT
  Age: 54 Year
  Sex: Female
  Weight: 60 kg

DRUGS (3)
  1. CORTISONE ACETATE [Concomitant]
     Indication: PAIN
     Dosage: 5 MG, UNK
  2. ENBREL [Suspect]
     Indication: RHEUMATOID ARTHRITIS
     Dosage: 25 MG, 2X/WEEK
     Route: 058
  3. OMEPRAZOLE [Concomitant]
     Dosage: 20 MG, 2X/DAY

REACTIONS (5)
  - ABDOMINAL DISTENSION [None]
  - NAUSEA [None]
  - OESOPHAGEAL INFECTION [None]
  - HEADACHE [None]
  - NECK PAIN [None]
